FAERS Safety Report 7047144-6 (Version None)
Quarter: 2010Q4

REPORT INFORMATION
  Report Type: 
  Country: None (occurrence: None)
  Receive Date: 20101015
  Receipt Date: 20101008
  Transmission Date: 20110411
  Serious: Yes (Death, Hospitalization, Other)
  Sender: FDA-Public Use
  Company Number: ES-CELGENEUS-144-50794-10092854

PATIENT
  Age: 72 Year
  Sex: Male

DRUGS (3)
  1. VIDAZA [Suspect]
     Route: 051
     Dates: start: 20090518, end: 20100416
  2. ONDANSETRON [Concomitant]
     Route: 065
  3. RED BLOOD CELLS [Concomitant]
     Indication: PRODUCT USED FOR UNKNOWN INDICATION
     Route: 051

REACTIONS (4)
  - FEBRILE NEUTROPENIA [None]
  - LEUKAEMIA [None]
  - MYELODYSPLASTIC SYNDROME TRANSFORMATION [None]
  - THROMBOCYTOPENIA [None]
